FAERS Safety Report 13974670 (Version 1)
Quarter: 2017Q3

REPORT INFORMATION
  Report Type: Spontaneous
  Country: HR (occurrence: HR)
  Receive Date: 20170915
  Receipt Date: 20170915
  Transmission Date: 20171128
  Serious: Yes (Hospitalization, Other)
  Sender: FDA-Public Use
  Company Number: HR-TEVA-805178ACC

PATIENT
  Age: 41 Year
  Sex: Female
  Weight: 74 kg

DRUGS (1)
  1. KLAVOCIN BID TABLETE 1G [Suspect]
     Active Substance: AMOXICILLIN\CLAVULANATE POTASSIUM
     Indication: URINARY TRACT INFECTION
     Dosage: 2 DOSAGE FORMS DAILY;
     Route: 048

REACTIONS (4)
  - Enterocolitis infectious [Recovered/Resolved]
  - Diarrhoea haemorrhagic [Recovered/Resolved]
  - Clostridium difficile infection [Recovered/Resolved]
  - Diarrhoea [Recovered/Resolved]

NARRATIVE: CASE EVENT DATE: 20161101
